FAERS Safety Report 4789687-1 (Version None)
Quarter: 2005Q4

REPORT INFORMATION
  Report Type: 
  Country: None (occurrence: None)
  Receive Date: 20051006
  Receipt Date: 20050927
  Transmission Date: 20060501
  Serious: Yes (Hospitalization)
  Sender: FDA-Public Use
  Company Number: JP-BRISTOL-MYERS SQUIBB COMPANY-13131156

PATIENT
  Age: 42 Year
  Sex: Male

DRUGS (12)
  1. EFAVIRENZ [Suspect]
     Indication: ACQUIRED IMMUNODEFICIENCY SYNDROME
     Route: 048
     Dates: start: 20050801
  2. EPZICOM [Suspect]
     Indication: ACQUIRED IMMUNODEFICIENCY SYNDROME
     Route: 048
     Dates: start: 20050801, end: 20050820
  3. EPZICOM [Suspect]
     Indication: GASTRITIS
     Route: 048
     Dates: start: 20050801, end: 20050820
  4. DIFLUCAN [Concomitant]
     Dates: start: 20050101
  5. PROTECADIN [Concomitant]
     Dates: start: 20050101
  6. ALLOPURINOL [Concomitant]
     Dates: start: 20050101
  7. VALGANCICLOVIR [Concomitant]
     Dates: start: 20050101
  8. COTRIM [Concomitant]
     Dates: start: 20050601
  9. RIMACTANE [Concomitant]
     Dates: start: 20050501
  10. ISCOTIN [Concomitant]
     Dates: start: 20050501
  11. EBUTOL [Concomitant]
     Dates: start: 20050501
  12. ZITHROMAC [Concomitant]
     Dates: start: 20050101

REACTIONS (2)
  - DRUG ERUPTION [None]
  - PYREXIA [None]
